FAERS Safety Report 24621032 (Version 7)
Quarter: 2025Q1

REPORT INFORMATION
  Report Type: Spontaneous
  Country: US (occurrence: US)
  Receive Date: 20241114
  Receipt Date: 20250206
  Transmission Date: 20250409
  Serious: No
  Sender: PFIZER
  Company Number: US-PFIZER INC-202400294159

PATIENT
  Age: 14 Year
  Sex: Male

DRUGS (1)
  1. GENOTROPIN [Suspect]
     Active Substance: SOMATROPIN
     Dosage: 1.6 MG, DAILY

REACTIONS (5)
  - Poor quality device used [Unknown]
  - Accidental exposure to product [Recovered/Resolved]
  - Exposure via skin contact [Recovered/Resolved]
  - Device leakage [Recovered/Resolved]
  - Device breakage [Unknown]
